FAERS Safety Report 10034410 (Version 1)
Quarter: 2014Q1

REPORT INFORMATION
  Report Type: Spontaneous
  Country: US (occurrence: US)
  Receive Date: 20140325
  Receipt Date: 20140325
  Transmission Date: 20141002
  Serious: Yes (Hospitalization)
  Sender: FDA-Public Use
  Company Number: US-SA-2014SA032892

PATIENT
  Age: 65 Year
  Sex: Male

DRUGS (2)
  1. LANTUS SOLOSTAR [Suspect]
     Indication: TYPE 2 DIABETES MELLITUS
     Dosage: DOSE:50 UNIT(S)
     Route: 065
     Dates: start: 2012
  2. SOLOSTAR [Suspect]
     Indication: DEVICE THERAPY
     Dates: start: 2012

REACTIONS (3)
  - Chest pain [Unknown]
  - Dyspnoea [Unknown]
  - Blood glucose increased [Unknown]
